FAERS Safety Report 19609325 (Version 2)
Quarter: 2021Q3

REPORT INFORMATION
  Report Type: Spontaneous
  Country: FI (occurrence: FI)
  Receive Date: 20210726
  Receipt Date: 20210805
  Transmission Date: 20211014
  Serious: Yes (Hospitalization)
  Sender: FDA-Public Use
  Company Number: FI-NOVA LABORATORIES LIMITED-2114258

PATIENT
  Age: 43 Year
  Sex: Female

DRUGS (4)
  1. PURIXAN [Suspect]
     Active Substance: MERCAPTOPURINE
     Indication: COLITIS ULCERATIVE
     Route: 048
     Dates: start: 20210607
  2. ASACOL [Concomitant]
     Active Substance: MESALAMINE
     Dates: start: 2016
  3. DASSELTA (DESLORATADINE) [Concomitant]
  4. COMIRNATY [Suspect]
     Active Substance: TOZINAMERAN
     Route: 030
     Dates: start: 20210604, end: 20210604

REACTIONS (8)
  - Pancreatic enzymes increased [Not Recovered/Not Resolved]
  - Iron deficiency anaemia [Not Recovered/Not Resolved]
  - Off label use [None]
  - Cytomegalovirus infection [Not Recovered/Not Resolved]
  - General physical health deterioration [Not Recovered/Not Resolved]
  - Impaired work ability [Not Recovered/Not Resolved]
  - Colitis ulcerative [Not Recovered/Not Resolved]
  - Urinary tract infection [Not Recovered/Not Resolved]

NARRATIVE: CASE EVENT DATE: 20210609
